FAERS Safety Report 4789764-5 (Version None)
Quarter: 2005Q4

REPORT INFORMATION
  Report Type: 
  Country: None (occurrence: None)
  Receive Date: 20051006
  Receipt Date: 20050819
  Transmission Date: 20060501
  Serious: Yes (Other)
  Sender: FDA-Public Use
  Company Number: 2005UW12473

PATIENT
  Age: 50 Year
  Sex: Female
  Weight: 84.1 kg

DRUGS (4)
  1. CRESTOR [Suspect]
     Indication: DYSLIPIDAEMIA
     Route: 048
     Dates: start: 20041112, end: 20050301
  2. GLUCOPHAGE XR [Concomitant]
     Indication: DIABETES MELLITUS NON-INSULIN-DEPENDENT
     Route: 048
  3. SYNTHROID [Concomitant]
     Indication: HYPOTHYROIDISM
     Route: 048
  4. LASIX [Concomitant]
     Indication: OEDEMA

REACTIONS (11)
  - ABDOMINAL DISTENSION [None]
  - BLOOD CREATINE PHOSPHOKINASE INCREASED [None]
  - CHOLELITHIASIS [None]
  - GALLBLADDER POLYP [None]
  - LIVER DISORDER [None]
  - MYALGIA [None]
  - NAUSEA [None]
  - NEPHROLITHIASIS [None]
  - PANCREATIC DISORDER [None]
  - RENAL DISORDER [None]
  - VOMITING [None]
